FAERS Safety Report 7608877-3 (Version None)
Quarter: 2011Q3

REPORT INFORMATION
  Report Type: 
  Country: None (occurrence: None)
  Receive Date: 20110714
  Receipt Date: 20110710
  Transmission Date: 20111222
  Serious: No
  Sender: FDA-Public Use
  Company Number: US-PFIZER INC-2011154831

PATIENT
  Sex: Female
  Weight: 70 kg

DRUGS (8)
  1. IBUPROFEN (ADVIL) [Suspect]
     Indication: HEADACHE
     Dosage: 200 MG, AS NEEDED
     Route: 048
     Dates: start: 20060101, end: 20110707
  2. IBUPROFEN (ADVIL) [Suspect]
     Indication: INSOMNIA
     Dosage: UNK
     Route: 048
     Dates: end: 20110707
  3. OXYBUTYNIN [Concomitant]
     Indication: HYPERTONIC BLADDER
     Dosage: 5 MG, DAILY
  4. METFORMIN HYDROCHLORIDE/SITAGLIPTIN [Concomitant]
     Indication: TYPE 2 DIABETES MELLITUS
     Dosage: 50/1000 MG, 2 TIMES DAILY
  5. SIMVASTATIN [Concomitant]
     Indication: BLOOD CHOLESTEROL DECREASED
     Dosage: 40 MG, DAILY
  6. PLAVIX [Concomitant]
     Indication: CEREBROVASCULAR ACCIDENT PROPHYLAXIS
     Dosage: 75 MG, DAILY
  7. LEVOTHYROXINE SODIUM [Concomitant]
     Dosage: 125 UG, DAILY
  8. VALSARTAN [Concomitant]
     Indication: ANGIOPATHY
     Dosage: 160 MG, DAILY

REACTIONS (3)
  - PRURITUS [None]
  - INCORRECT DOSE ADMINISTERED [None]
  - RASH PAPULAR [None]
